FAERS Safety Report 5429902-4 (Version None)
Quarter: 2007Q3

REPORT INFORMATION
  Report Type: 
  Country: None (occurrence: None)
  Receive Date: 20070827
  Receipt Date: 20070810
  Transmission Date: 20080115
  Serious: Yes (Life-Threatening, Hospitalization)
  Sender: FDA-Public Use
  Company Number: DSA_30433_2007

PATIENT
  Sex: Female

DRUGS (4)
  1. TAVOR /00273201/ (TAVOR - LORAZEPAM) 2.5 MG [Suspect]
     Dosage: (10 MG 1X ORAL)
     Route: 048
     Dates: start: 20070805, end: 20070805
  2. FLUOXETINE [Suspect]
     Dosage: (1200 MG 1X ORAL)
     Route: 048
     Dates: start: 20070805, end: 20070805
  3. LEVOPROMAZIN (LEVOPROMAZIN) 10 MG [Suspect]
     Dosage: (400 MG 1X ORAL)
     Route: 048
     Dates: start: 20070805, end: 20070805
  4. ZOPICLONE (ZOPICLONE) 7.5 MG [Suspect]
     Dosage: (150 MG 1X ORAL)
     Route: 048
     Dates: start: 20070805, end: 20070805

REACTIONS (3)
  - MULTIPLE DRUG OVERDOSE INTENTIONAL [None]
  - SUICIDE ATTEMPT [None]
  - TACHYCARDIA [None]
